FAERS Safety Report 7053816-X (Version None)
Quarter: 2010Q4

REPORT INFORMATION
  Report Type: 
  Country: None (occurrence: None)
  Receive Date: 20101020
  Receipt Date: 20101008
  Transmission Date: 20110411
  Serious: Yes (Hospitalization)
  Sender: FDA-Public Use
  Company Number: DE-WATSON-2009-11866

PATIENT
  Age: 79 Year
  Sex: Male
  Weight: 58 kg

DRUGS (11)
  1. RAMIPRIL [Suspect]
     Indication: HYPERTENSION
     Dosage: 1.25 MG, DAILY
     Route: 048
     Dates: start: 20080620
  2. TORASEMIDE [Suspect]
     Indication: HYPERTENSION
     Dosage: 10 MG, DAILY
     Route: 048
     Dates: start: 20080620
  3. XIPAMIDE [Suspect]
     Indication: HYPERTENSION
     Dosage: 5 MG, DAILY
     Route: 048
     Dates: start: 20080620
  4. ALDACTONE [Suspect]
     Indication: CARDIAC FAILURE
     Dosage: 25 MG, DAILY
     Route: 048
     Dates: start: 20080620
  5. FALITHROM [Concomitant]
     Indication: CORONARY ARTERY DISEASE
     Dosage: UNK
     Route: 048
     Dates: start: 20080620
  6. METOCLOPRAMIDE [Concomitant]
     Indication: GASTROINTESTINAL MOTILITY DISORDER
     Dosage: 20 GTT DROPS 3
     Route: 048
     Dates: start: 20080618, end: 20080620
  7. PANTOZOL                           /01263202/ [Concomitant]
     Indication: DUODENAL ULCER
     Dosage: 40 MG, DAILY
     Route: 048
     Dates: start: 20080301, end: 20080620
  8. METAMIZOL NATRIUM [Concomitant]
     Indication: PAIN
     Dosage: 500 MG, UNKNOWN
     Route: 048
     Dates: start: 20080620
  9. ALLOPURINOL [Concomitant]
     Indication: HYPERURICAEMIA
     Dosage: 300 MG, UNKNOWN
     Route: 048
     Dates: start: 20000101
  10. SIMVASTATIN [Concomitant]
     Indication: CORONARY ARTERY DISEASE
     Dosage: 40 MG, DAILY
     Route: 048
     Dates: start: 20030101
  11. RISPERIDONE [Concomitant]
     Indication: DEMENTIA
     Dosage: 0.5 MG, DAILY
     Route: 048
     Dates: start: 20050101

REACTIONS (2)
  - ELECTROLYTE DEPLETION [None]
  - SYNCOPE [None]
